FAERS Safety Report 8292969-2 (Version None)
Quarter: 2012Q2

REPORT INFORMATION
  Report Type: 
  Country: None (occurrence: None)
  Receive Date: 20120417
  Receipt Date: 20110928
  Transmission Date: 20120825
  Serious: No
  Sender: FDA-Public Use
  Company Number: US-ASTRAZENECA-2011SE58643

PATIENT
  Age: 59 Year
  Sex: Female
  Weight: 56.7 kg

DRUGS (2)
  1. NEXIUM [Suspect]
     Route: 048
  2. COUMADIN [Concomitant]

REACTIONS (4)
  - DYSPHAGIA [None]
  - OROPHARYNGEAL PAIN [None]
  - PHARYNGEAL MASS [None]
  - BRONCHITIS [None]
